FAERS Safety Report 12811950 (Version 2)
Quarter: 2016Q4

REPORT INFORMATION
  Report Type: Spontaneous
  Country: CH (occurrence: CH)
  Receive Date: 20161005
  Receipt Date: 20161026
  Transmission Date: 20170207
  Serious: Yes (Other)
  Sender: FDA-Public Use
  Company Number: CH-ACORDA-ACO_128805_2016

PATIENT
  Sex: Female

DRUGS (1)
  1. QUTENZA [Suspect]
     Active Substance: CAPSAICIN
     Indication: NEURALGIA
     Dosage: 8 %, ONE TIME
     Route: 062
     Dates: start: 20160822, end: 20160822

REACTIONS (1)
  - Breast discharge [Unknown]

NARRATIVE: CASE EVENT DATE: 20160913
